FAERS Safety Report 14081438 (Version 2)
Quarter: 2017Q4

REPORT INFORMATION
  Report Type: Report from Study
  Country: ES (occurrence: ES)
  Receive Date: 20171013
  Receipt Date: 20171017
  Transmission Date: 20180321
  Serious: Yes (Death, Life-Threatening, Hospitalization)
  Sender: FDA-Public Use
  Company Number: ES-PFIZER INC-2017439128

PATIENT
  Age: 66 Year
  Sex: Female

DRUGS (6)
  1. BISOPROLOL [Concomitant]
     Active Substance: BISOPROLOL
     Dosage: UNK
     Dates: start: 201208, end: 20170422
  2. DIGOXIN. [Concomitant]
     Active Substance: DIGOXIN
     Dosage: UNK
     Dates: start: 201512, end: 20170422
  3. TRANGOREX [Suspect]
     Active Substance: AMIODARONE HYDROCHLORIDE
     Indication: ATRIAL FIBRILLATION
     Dosage: 200 MG, DAILY
     Route: 048
     Dates: start: 201208
  4. ALDOCUMAR [Interacting]
     Active Substance: WARFARIN SODIUM
     Indication: CARDIAC VALVE PROSTHESIS USER
     Dosage: UNK
     Route: 048
     Dates: end: 20170422
  5. FLUOXETINE [Interacting]
     Active Substance: FLUOXETINE HYDROCHLORIDE
     Dosage: 80 MG, DAILY
     Route: 048
     Dates: start: 201510
  6. FUROSEMIDA [Concomitant]
     Active Substance: FUROSEMIDE
     Dosage: UNK
     Dates: start: 201407

REACTIONS (2)
  - Haemorrhage intracranial [Unknown]
  - Drug interaction [Unknown]

NARRATIVE: CASE EVENT DATE: 20170422
